FAERS Safety Report 10413291 (Version 1)
Quarter: 2014Q3

REPORT INFORMATION
  Report Type: Spontaneous
  Country: FR (occurrence: FR)
  Receive Date: 20140827
  Receipt Date: 20140827
  Transmission Date: 20150326
  Serious: Yes (Hospitalization)
  Sender: FDA-Public Use
  Company Number: FR-PFIZER INC-2014233730

PATIENT
  Age: 78 Year
  Sex: Male

DRUGS (13)
  1. VISIPAQUE [Suspect]
     Active Substance: IODIXANOL
     Indication: ARTERIOGRAM CORONARY
     Dosage: 1 DF, 1X/DAY
     Route: 013
     Dates: start: 20140717, end: 20140717
  2. CORDARONE [Suspect]
     Active Substance: AMIODARONE HYDROCHLORIDE
     Dosage: 200 MG, 1X/DAY
     Route: 048
     Dates: start: 20140714, end: 20140715
  3. KARDEGIC [Concomitant]
     Active Substance: ASPIRIN LYSINE
     Dosage: UNK
     Dates: end: 20140714
  4. BISOCE [Concomitant]
     Active Substance: BISOPROLOL
     Dosage: UNK
     Dates: start: 20140714
  5. BRILIQUE [Suspect]
     Active Substance: TICAGRELOR
     Dosage: 1 DF, 2X/DAY
     Route: 048
     Dates: start: 20140714, end: 20140725
  6. ISOPTIN [Suspect]
     Active Substance: VERAPAMIL HYDROCHLORIDE
     Dosage: 1 DF, SINGLE
     Route: 013
     Dates: start: 20140723, end: 20140723
  7. RISORDAN [Suspect]
     Active Substance: ISOSORBIDE DINITRATE
     Indication: ARTERIOGRAM CORONARY
     Dosage: 1 DOSAGE FORM
     Route: 013
     Dates: start: 20140717, end: 20140717
  8. ALTEIS [Concomitant]
     Active Substance: OLMESARTAN MEDOXOMIL
     Dosage: 40 MG
  9. KARDEGIC [Concomitant]
     Active Substance: ASPIRIN LYSINE
     Dosage: 75 MG, DAILY
     Dates: start: 20140714
  10. TAHOR [Suspect]
     Active Substance: ATORVASTATIN CALCIUM
     Dosage: 40 MG, 1X/DAY
     Route: 048
     Dates: start: 20140715, end: 20140725
  11. VISIPAQUE [Suspect]
     Active Substance: IODIXANOL
     Dosage: 1 DF, 1X/DAY
     Route: 013
     Dates: start: 20140723, end: 20140723
  12. ISOPTIN [Suspect]
     Active Substance: VERAPAMIL HYDROCHLORIDE
     Indication: ARTERIOGRAM CORONARY
     Dosage: 1 DF, SINGLE
     Route: 013
     Dates: start: 20140717, end: 20140717
  13. RISORDAN [Suspect]
     Active Substance: ISOSORBIDE DINITRATE
     Dosage: 1 DOSAGE FORM
     Route: 013
     Dates: start: 20140723, end: 20140723

REACTIONS (1)
  - Immune thrombocytopenic purpura [Recovered/Resolved]

NARRATIVE: CASE EVENT DATE: 20140725
